FAERS Safety Report 4383239-3 (Version None)
Quarter: 2004Q2

REPORT INFORMATION
  Report Type: 
  Country: None (occurrence: None)
  Receive Date: 20040618
  Receipt Date: 20040601
  Transmission Date: 20050107
  Serious: Yes (Other)
  Sender: FDA-Public Use
  Company Number: USA031049961

PATIENT
  Age: 41 Year
  Sex: Male
  Weight: 74 kg

DRUGS (5)
  1. HUMULIN L [Suspect]
     Indication: DIABETES MELLITUS
     Dosage: 20 U/DAY
  2. HUMALOG [Suspect]
     Indication: DIABETES MELLITUS
  3. CAPOTEIN (CAPTOPRIL) [Concomitant]
  4. ASPIRIN [Concomitant]
  5. WELLBUTRIN [Concomitant]

REACTIONS (9)
  - APHASIA [None]
  - BRAIN DAMAGE [None]
  - DEPRESSION [None]
  - FATIGUE [None]
  - FEELING COLD [None]
  - HYPOGLYCAEMIA [None]
  - HYPOGLYCAEMIC SEIZURE [None]
  - INCOHERENT [None]
  - PHARMACEUTICAL PRODUCT COMPLAINT [None]
